FAERS Safety Report 4648282-5 (Version None)
Quarter: 2005Q2

REPORT INFORMATION
  Report Type: 
  Country: None (occurrence: None)
  Receive Date: 20050426
  Receipt Date: 20050418
  Transmission Date: 20051028
  Serious: Yes (Hospitalization)
  Sender: FDA-Public Use
  Company Number: 163-20785-05040352

PATIENT
  Age: 66 Year
  Sex: Male

DRUGS (6)
  1. THALOMID [Suspect]
     Indication: MULTIPLE MYELOMA
     Dosage: 50 MG, QD, ORAL
     Route: 048
     Dates: start: 20040811, end: 20040831
  2. CATAPRES [Concomitant]
  3. NORVASC [Concomitant]
  4. ZOMETA [Concomitant]
  5. ARANESP [Concomitant]
  6. CENTRUM SILVER (CENTRUM SILVER) [Concomitant]

REACTIONS (7)
  - CONFUSIONAL STATE [None]
  - DIZZINESS [None]
  - FATIGUE [None]
  - HYPERCALCAEMIA [None]
  - HYPERVISCOSITY SYNDROME [None]
  - MENTAL STATUS CHANGES [None]
  - PAIN [None]
